FAERS Safety Report 8304721-X (Version None)
Quarter: 2012Q2

REPORT INFORMATION
  Report Type: 
  Country: None (occurrence: None)
  Receive Date: 20120423
  Receipt Date: 20120409
  Transmission Date: 20120825
  Serious: Yes (Death)
  Sender: FDA-Public Use
  Company Number: US-ROCHE-1054891

PATIENT
  Sex: Male

DRUGS (16)
  1. FERROUS SULFATE TAB [Concomitant]
  2. SYNTHROID [Concomitant]
  3. XELODA [Suspect]
     Indication: OESOPHAGEAL CARCINOMA
     Dates: start: 20111112
  4. CORGARD [Concomitant]
  5. ZOLOFT [Concomitant]
  6. ALDACTONE [Concomitant]
     Dosage: TAKE 1 TBLET BY MOUTH DAILY
  7. ZOCOR [Concomitant]
     Dosage: TAKE 0.5 TABLETS BY MOUTH AT BEDTIME
  8. VICODIN [Concomitant]
     Dosage: 5-500 MG
  9. CHRONULAC [Concomitant]
     Dosage: 10GM/15ML
  10. LASIX [Concomitant]
  11. ATIVAN [Concomitant]
  12. PRILOSEC [Concomitant]
  13. LOVENOX [Concomitant]
     Dosage: 100 MG/ML
     Route: 058
  14. NOVOLOG [Concomitant]
     Route: 058
  15. RESTORIL [Concomitant]
  16. GLUCOPHAGE [Concomitant]

REACTIONS (5)
  - DEATH [None]
  - PALMAR-PLANTAR ERYTHRODYSAESTHESIA SYNDROME [None]
  - NEUROPATHY PERIPHERAL [None]
  - MUCOSAL INFLAMMATION [None]
  - FATIGUE [None]
